FAERS Safety Report 24685660 (Version 2)
Quarter: 2025Q1

REPORT INFORMATION
  Report Type: Spontaneous
  Country: US (occurrence: US)
  Receive Date: 20241202
  Receipt Date: 20250212
  Transmission Date: 20250409
  Serious: No
  Sender: BRISTOL-MYERS SQUIBB COMPANY
  Company Number: US-BRISTOL-MYERS SQUIBB COMPANY-2024-187495

PATIENT
  Age: 80 Year
  Sex: Female
  Weight: 63.4 kg

DRUGS (2)
  1. IDHIFA [Suspect]
     Active Substance: ENASIDENIB MESYLATE
     Indication: Acute myeloid leukaemia
     Route: 048
     Dates: start: 20240111
  2. IDHIFA [Suspect]
     Active Substance: ENASIDENIB MESYLATE
     Route: 048
     Dates: start: 20240111

REACTIONS (3)
  - Dizziness [Unknown]
  - Chest pain [Unknown]
  - Product dose omission issue [Unknown]
